FAERS Safety Report 9916020 (Version 1)
Quarter: 2014Q1

REPORT INFORMATION
  Report Type: Spontaneous
  Country: US (occurrence: None)
  Receive Date: 20140219
  Receipt Date: 20140219
  Transmission Date: 20141002
  Serious: Yes (Life-Threatening, Hospitalization)
  Sender: FDA-Public Use
  Company Number: None

PATIENT
  Age: 28 Year
  Sex: Female
  Weight: 68.04 kg

DRUGS (1)
  1. CIPROFLOXACIN [Suspect]
     Indication: URINARY TRACT INFECTION
     Dates: start: 20070201

REACTIONS (1)
  - Anaphylactic reaction [None]
